FAERS Safety Report 5980175-3 (Version None)
Quarter: 2008Q4

REPORT INFORMATION
  Report Type: 
  Country: None (occurrence: None)
  Receive Date: 20081205
  Receipt Date: 20081126
  Transmission Date: 20090506
  Serious: Yes (Other)
  Sender: FDA-Public Use
  Company Number: JP-BAYER-200812907BYL

PATIENT
  Sex: Female

DRUGS (1)
  1. ADALAT CC [Suspect]
     Indication: DRUG USE FOR UNKNOWN INDICATION
     Route: 048

REACTIONS (3)
  - OEDEMA [None]
  - POLLAKIURIA [None]
  - RETINAL HAEMORRHAGE [None]
